FAERS Safety Report 4660670-X (Version None)
Quarter: 2005Q2

REPORT INFORMATION
  Report Type: 
  Country: None (occurrence: None)
  Receive Date: 20050512
  Receipt Date: 20050509
  Transmission Date: 20051028
  Serious: Yes (Death)
  Sender: FDA-Public Use
  Company Number: US-ABBOTT-05P-163-0300055-00

PATIENT
  Sex: Male

DRUGS (5)
  1. DEPAKOTE ER [Suspect]
     Indication: BIPOLAR I DISORDER
     Route: 048
     Dates: end: 20050503
  2. DEPAKOTE ER [Suspect]
     Indication: SOCIAL PHOBIA
  3. ALPRAZOLAM [Concomitant]
     Indication: BIPOLAR I DISORDER
     Route: 048
  4. ALPRAZOLAM [Concomitant]
     Indication: SOCIAL PHOBIA
  5. FLURAZEPAM HCL [Concomitant]
     Indication: INSOMNIA
     Route: 048

REACTIONS (1)
  - COMPLETED SUICIDE [None]
